FAERS Safety Report 17686472 (Version 1)
Quarter: 2020Q2

REPORT INFORMATION
  Report Type: Spontaneous
  Country: US (occurrence: US)
  Receive Date: 20200420
  Receipt Date: 20200420
  Transmission Date: 20200714
  Serious: No
  Sender: FDA-Public Use
  Company Number: US-ASTRAZENECA-2020SE49616

PATIENT
  Sex: Female

DRUGS (4)
  1. LISINOPRIL. [Concomitant]
     Active Substance: LISINOPRIL
  2. CLONAZEPAM. [Concomitant]
     Active Substance: CLONAZEPAM
  3. ATENOLOL. [Suspect]
     Active Substance: ATENOLOL
     Route: 065
  4. IBRANCE [Suspect]
     Active Substance: PALBOCICLIB
     Indication: METASTASES TO BREAST
     Dosage: 75 MG, 1 DAILY FOR 21 DAYS
     Route: 048
     Dates: start: 20200310, end: 20200406

REACTIONS (2)
  - Drug hypersensitivity [Unknown]
  - Full blood count decreased [Unknown]

NARRATIVE: CASE EVENT DATE: 20200406
